FAERS Safety Report 9670239 (Version 1)
Quarter: 2013Q4

REPORT INFORMATION
  Report Type: Spontaneous
  Country: US (occurrence: US)
  Receive Date: 20131105
  Receipt Date: 20131105
  Transmission Date: 20140711
  Serious: Yes (Other)
  Sender: FDA-Public Use
  Company Number: CHPA2013US016500

PATIENT
  Age: 50 Year
  Sex: Female

DRUGS (10)
  1. MAALOX ANTACID/ANTIGAS RS LIQ COOL MINT [Suspect]
     Indication: GASTROOESOPHAGEAL REFLUX DISEASE
     Dosage: 2 TSP, PRN
     Route: 048
     Dates: start: 2000, end: 2012
  2. MAALOX ANTACID/ANTIGAS RS LIQ COOL MINT [Suspect]
     Indication: CROHN^S DISEASE
  3. MAALOX ANTACID/ANTIGAS RS LIQ COOL MINT [Suspect]
     Indication: PROPHYLAXIS
  4. MAALOX ANTACID/ANTIGAS RS LIQ COOL MINT [Suspect]
     Indication: OFF LABEL USE
  5. MAALOX ANTACID/ANTIGAS MAX LIQ UNKNOWN [Suspect]
     Indication: CHEST PAIN
     Dosage: A DOSAGE CUP, UNK
     Route: 048
     Dates: start: 200011, end: 2010
  6. MAALOX ANTACID/ANTIGAS MAX LIQ UNKNOWN [Suspect]
     Indication: BACK PAIN
  7. MAALOX ANTACID/ANTIGAS MAX LIQ UNKNOWN [Suspect]
     Indication: GALLBLADDER DISORDER
  8. MAALOX ANTACID/ANTIGAS MAX LIQ UNKNOWN [Suspect]
     Indication: OFF LABEL USE
  9. ANTIEMETICS [Concomitant]
  10. CLARITIN [Concomitant]
     Indication: MULTIPLE ALLERGIES

REACTIONS (10)
  - Crohn^s disease [Not Recovered/Not Resolved]
  - Gastrooesophageal reflux disease [Not Recovered/Not Resolved]
  - Incisional hernia [Not Recovered/Not Resolved]
  - Intestinal prolapse [Recovered/Resolved]
  - Flatulence [Recovered/Resolved]
  - Procedural nausea [Recovered/Resolved]
  - Procedural vomiting [Recovered/Resolved]
  - Stress [Recovered/Resolved]
  - Expired drug administered [Unknown]
  - Therapeutic response unexpected [Unknown]
